FAERS Safety Report 20929943 (Version 2)
Quarter: 2022Q2

REPORT INFORMATION
  Report Type: Spontaneous
  Country: US (occurrence: US)
  Receive Date: 20220608
  Receipt Date: 20220620
  Transmission Date: 20220721
  Serious: No
  Sender: FDA-Public Use
  Company Number: US-LUPIN PHARMACEUTICALS INC.-2022-08068

PATIENT
  Sex: Female
  Weight: 6.349 kg

DRUGS (1)
  1. FAMOTIDINE [Suspect]
     Active Substance: FAMOTIDINE
     Indication: Dyspepsia
     Dosage: 0.4 MILLILITER, BID
     Route: 065
     Dates: start: 20220524

REACTIONS (2)
  - Abdominal pain upper [Unknown]
  - Adverse drug reaction [Unknown]
